FAERS Safety Report 18486995 (Version 1)
Quarter: 2020Q4

REPORT INFORMATION
  Report Type: Spontaneous
  Country: CH (occurrence: CH)
  Receive Date: 20201110
  Receipt Date: 20201110
  Transmission Date: 20210114
  Serious: Yes (Death, Other)
  Sender: FDA-Public Use
  Company Number: CH-BIOGEN-2020BI00943273

PATIENT

DRUGS (1)
  1. TECFIDERA [Suspect]
     Active Substance: DIMETHYL FUMARATE
     Indication: RELAPSING-REMITTING MULTIPLE SCLEROSIS
     Dosage: MATERNAL INTAKE FROM JUL 2015 TO 09 SEP 2020
     Route: 064
     Dates: start: 201507, end: 20200909

REACTIONS (3)
  - Abortion [Fatal]
  - Foetal damage [Fatal]
  - Foetal disorder [Fatal]

NARRATIVE: CASE EVENT DATE: 202009
